FAERS Safety Report 8369719 (Version 3)
Quarter: 2012Q4

REPORT INFORMATION
  Report Type: Report from Study
  Country: US (occurrence: US)
  Receive Date: 20120128
  Receipt Date: 20121231
  Transmission Date: 20130627
  Serious: Yes (Hospitalization, Other)
  Sender: FDA-Public Use
  Company Number: US-ABBOTT-11P-163-0707638-00

PATIENT
  Age: 70 None
  Sex: Female
  Weight: 66.28 kg

DRUGS (16)
  1. HUMIRA [Suspect]
     Indication: RHEUMATOID ARTHRITIS
  2. HUMIRA [Suspect]
  3. HUMIRA [Suspect]
  4. HUMIRA [Suspect]
  5. ZOLOFT [Concomitant]
     Indication: DEPRESSION
     Route: 048
  6. ZOLOFT [Concomitant]
     Dosage: 150mg daily
  7. LAMICTAL [Concomitant]
     Indication: BIPOLAR DISORDER
  8. ALPRAZOLAM [Concomitant]
     Indication: ANXIETY
     Route: 048
  9. LEVOTHYROXINE [Concomitant]
     Indication: THYROID DISORDER
     Route: 048
  10. ETODOLAC [Concomitant]
     Indication: PAIN
     Route: 048
  11. MULTIVIT [Concomitant]
     Indication: PRODUCT USED FOR UNKNOWN INDICATION
  12. OMEGA 3 [Concomitant]
     Indication: PRODUCT USED FOR UNKNOWN INDICATION
  13. BABY ASA [Concomitant]
     Indication: PRODUCT USED FOR UNKNOWN INDICATION
  14. WELLBUTRIN SR [Concomitant]
     Indication: DEPRESSION
  15. PRAVASTATIN [Concomitant]
     Indication: BLOOD CHOLESTEROL INCREASED
  16. AMLODIPINE [Concomitant]
     Indication: HYPERTENSION
     Route: 048

REACTIONS (34)
  - Fall [Unknown]
  - Ankle fracture [Unknown]
  - Aortic aneurysm [Not Recovered/Not Resolved]
  - Gait disturbance [Not Recovered/Not Resolved]
  - Peritonsillar abscess [Recovered/Resolved]
  - Peritonsillar abscess [Recovered/Resolved]
  - Pyrexia [Recovered/Resolved]
  - Fatigue [Not Recovered/Not Resolved]
  - Somnolence [Not Recovered/Not Resolved]
  - Pain in extremity [Not Recovered/Not Resolved]
  - Tooth extraction [Recovered/Resolved]
  - Essential tremor [Unknown]
  - Neuropathy peripheral [Unknown]
  - Fall [Unknown]
  - Fall [Unknown]
  - Fall [Unknown]
  - Fall [Unknown]
  - Fall [Unknown]
  - Fall [Unknown]
  - Somnolence [Not Recovered/Not Resolved]
  - Tooth repair [Unknown]
  - Asthenia [Unknown]
  - Blood pressure increased [Recovered/Resolved]
  - Neuropathy peripheral [Unknown]
  - Hypoaesthesia [Unknown]
  - Balance disorder [Unknown]
  - Transient ischaemic attack [Unknown]
  - Sinus disorder [Not Recovered/Not Resolved]
  - Benign neoplasm [Unknown]
  - Walking aid user [Unknown]
  - Cataract [Unknown]
  - Pain in jaw [Unknown]
  - Impaired healing [Not Recovered/Not Resolved]
  - Jaw fracture [Unknown]
